FAERS Safety Report 5705250-X (Version None)
Quarter: 2008Q2

REPORT INFORMATION
  Report Type: 
  Country: None (occurrence: None)
  Receive Date: 20080410
  Receipt Date: 20080404
  Transmission Date: 20081010
  Serious: Yes (Hospitalization)
  Sender: FDA-Public Use
  Company Number: GXKR2008DE02559

PATIENT
  Sex: Female

DRUGS (1)
  1. CEFUHEXAL (NGX)(CEFUROXIME) GRANULATE FOR ORAL SUSPENSION, 25MG/ML [Suspect]
     Indication: OTITIS MEDIA ACUTE
     Dosage: 150 MG/ML, BID, ORAL
     Route: 048
     Dates: start: 20080228, end: 20080304

REACTIONS (2)
  - GASTROENTERITIS ROTAVIRUS [None]
  - OTITIS EXTERNA [None]
